FAERS Safety Report 9397557 (Version 12)
Quarter: 2015Q2

REPORT INFORMATION
  Report Type: Report from Study
  Country: US (occurrence: US)
  Receive Date: 20130712
  Receipt Date: 20150603
  Transmission Date: 20150821
  Serious: Yes (Hospitalization, Other)
  Sender: FDA-Public Use
  Company Number: US-SANOFI-AVENTIS-2013SA069524

PATIENT
  Age: 60 Year
  Sex: Female

DRUGS (3)
  1. AUBAGIO [Suspect]
     Active Substance: TERIFLUNOMIDE
     Indication: MULTIPLE SCLEROSIS
     Route: 048
     Dates: start: 20150204
  2. AUBAGIO [Suspect]
     Active Substance: TERIFLUNOMIDE
     Indication: MULTIPLE SCLEROSIS
     Route: 048
     Dates: start: 20140817, end: 20141202
  3. AUBAGIO [Suspect]
     Active Substance: TERIFLUNOMIDE
     Indication: MULTIPLE SCLEROSIS
     Route: 048
     Dates: start: 20130517, end: 20140601

REACTIONS (17)
  - Back pain [Not Recovered/Not Resolved]
  - Alopecia [Recovered/Resolved]
  - Fall [Unknown]
  - Fatigue [Unknown]
  - Onychoclasis [Unknown]
  - Intervertebral disc protrusion [Unknown]
  - Nasal congestion [Unknown]
  - Malaise [Not Recovered/Not Resolved]
  - Dysphonia [Unknown]
  - Multiple sclerosis relapse [Recovering/Resolving]
  - Drug dose omission [Unknown]
  - Back injury [Unknown]
  - Feeling abnormal [Unknown]
  - Hypoaesthesia [Unknown]
  - Pain [Unknown]
  - Immobile [Unknown]
  - Sensory loss [Unknown]

NARRATIVE: CASE EVENT DATE: 20140728
